FAERS Safety Report 22648673 (Version 8)
Quarter: 2024Q1

REPORT INFORMATION
  Report Type: Report from Study
  Country: US (occurrence: US)
  Receive Date: 20230628
  Receipt Date: 20240118
  Transmission Date: 20240410
  Serious: Yes (Hospitalization, Other)
  Sender: FDA-Public Use
  Company Number: US-ABBVIE-5306657

PATIENT
  Sex: Female
  Weight: 56.245 kg

DRUGS (4)
  1. RINVOQ [Suspect]
     Active Substance: UPADACITINIB
     Indication: Dermatitis atopic
     Route: 048
     Dates: start: 20221216
  2. RINVOQ [Suspect]
     Active Substance: UPADACITINIB
     Indication: Dermatitis atopic
     Route: 048
     Dates: start: 20221114, end: 20221114
  3. RINVOQ [Suspect]
     Active Substance: UPADACITINIB
     Indication: Dermatitis atopic
     Route: 048
     Dates: start: 20230125
  4. RINVOQ [Suspect]
     Active Substance: UPADACITINIB
     Indication: Dermatitis atopic
     Dosage: LAST ADMIN DATE: 2022
     Route: 048
     Dates: start: 20221114

REACTIONS (5)
  - Hip fracture [Recovering/Resolving]
  - Fall [Recovering/Resolving]
  - Device loosening [Recovering/Resolving]
  - Anaemia [Unknown]
  - Pain [Unknown]

NARRATIVE: CASE EVENT DATE: 20230101
